FAERS Safety Report 17220349 (Version 2)
Quarter: 2020Q1

REPORT INFORMATION
  Report Type: Spontaneous
  Country: US (occurrence: US)
  Receive Date: 20191231
  Receipt Date: 20200103
  Transmission Date: 20200409
  Serious: No
  Sender: FDA-Public Use
  Company Number: US-PFIZER INC-2019556301

PATIENT
  Age: 55 Year
  Sex: Male
  Weight: 156.9 kg

DRUGS (8)
  1. CARISOPRODOL. [Suspect]
     Active Substance: CARISOPRODOL
     Dosage: UNK
  2. SKELAXIN [Suspect]
     Active Substance: METAXALONE
     Dosage: UNK
     Dates: start: 2014, end: 201910
  3. BACLOFEN. [Concomitant]
     Active Substance: BACLOFEN
     Dosage: 10 MG, 3X/DAY
     Route: 048
     Dates: start: 2014
  4. GABAPENTIN. [Concomitant]
     Active Substance: GABAPENTIN
     Dosage: 300 MG, 3X/DAY
     Route: 048
     Dates: start: 201410
  5. WARFARIN [Concomitant]
     Active Substance: WARFARIN
     Dosage: UNK UNK, DAILY (2.5 MG, DAILY (MON, WED, FRI); 5 MG, DAILY (TUES, THURS, SAT, SUN)
     Route: 048
  6. CELEBREX [Suspect]
     Active Substance: CELECOXIB
     Dosage: UNK
     Dates: start: 2014
  7. VALSARTAN. [Concomitant]
     Active Substance: VALSARTAN
     Dosage: UNK, 1X/DAY (160-12.5MG, ONCE A DAY BY MOUTH)
     Route: 048
     Dates: start: 2011
  8. LISINOPRIL. [Concomitant]
     Active Substance: LISINOPRIL
     Dosage: 10 MG, 1X/DAY
     Route: 048

REACTIONS (2)
  - Glucose tolerance impaired [Unknown]
  - Weight decreased [Unknown]
